FAERS Safety Report 10337836 (Version 3)
Quarter: 2015Q1

REPORT INFORMATION
  Report Type: Spontaneous
  Country: US (occurrence: US)
  Receive Date: 20140724
  Receipt Date: 20150119
  Transmission Date: 20150720
  Serious: No
  Sender: FDA-Public Use
  Company Number: US-UNITED THERAPEUTICS-UTC-047445

PATIENT
  Sex: Female
  Weight: 95.24 kg

DRUGS (5)
  1. REVATIO [Concomitant]
     Active Substance: SILDENAFIL CITRATE
  2. REMODULIN [Suspect]
     Active Substance: TREPROSTINIL
     Dosage: 0.086 UG/KG/MIN, CONTINUING
     Route: 058
     Dates: start: 20040120
  3. REMODULIN [Suspect]
     Active Substance: TREPROSTINIL
     Dosage: 0.086 UG/KG/MIN
     Route: 058
     Dates: start: 201404
  4. WARFARIN [Concomitant]
     Active Substance: WARFARIN
  5. TRACLEER [Concomitant]
     Active Substance: BOSENTAN\BOSENTAN MONOHYDRATE

REACTIONS (6)
  - Diarrhoea [Unknown]
  - Dyspnoea [Unknown]
  - Fatigue [Unknown]
  - Pain in extremity [Unknown]
  - Abdominal pain [Unknown]
  - Chest pain [Unknown]
